FAERS Safety Report 12973923 (Version 5)
Quarter: 2017Q2

REPORT INFORMATION
  Report Type: Spontaneous
  Country: TW (occurrence: TW)
  Receive Date: 20161124
  Receipt Date: 20170418
  Transmission Date: 20170830
  Serious: Yes (Hospitalization, Other)
  Sender: FDA-Public Use
  Company Number: TW-AMGEN-TWNSP2016165808

PATIENT
  Age: 58 Year
  Sex: Male

DRUGS (7)
  1. ENBREL [Suspect]
     Active Substance: ETANERCEPT
     Indication: RHEUMATOID ARTHRITIS
     Dosage: 25 MG, 2X/WEEK
     Route: 058
     Dates: start: 20131210
  2. ENBREL [Suspect]
     Active Substance: ETANERCEPT
     Dosage: 25 MG, WEEKLY
     Route: 058
     Dates: start: 20170407
  3. PREDNISOLONE. [Concomitant]
     Active Substance: PREDNISOLONE
     Indication: RHEUMATOID ARTHRITIS
     Dosage: 1 DF, 1X/DAY
  4. ARCOXIA [Concomitant]
     Active Substance: ETORICOXIB
     Indication: RHEUMATOID ARTHRITIS
     Dosage: 1 DF, 1X/DAY
  5. ENBREL [Suspect]
     Active Substance: ETANERCEPT
     Dosage: 25 MG, 2X/WEEK
     Route: 058
     Dates: start: 20161115, end: 20161229
  6. FOLIC ACID. [Concomitant]
     Active Substance: FOLIC ACID
     Indication: RHEUMATOID ARTHRITIS
     Dosage: 1 DF, 1X/DAY
  7. MTX [Concomitant]
     Active Substance: METHOTREXATE SODIUM
     Indication: RHEUMATOID ARTHRITIS
     Dosage: 3 DF, WEEKLY

REACTIONS (3)
  - Hypoaesthesia [Recovering/Resolving]
  - Pulmonary mass [Unknown]
  - Pleural effusion [Not Recovered/Not Resolved]

NARRATIVE: CASE EVENT DATE: 20161109
